FAERS Safety Report 8977570 (Version 1)
Quarter: 2012Q4

REPORT INFORMATION
  Report Type: 
  Country: US (occurrence: US)
  Receive Date: 20121220
  Receipt Date: 20121220
  Transmission Date: 20130627
  Serious: Yes (Hospitalization)
  Sender: FDA-Public Use
  Company Number: US-GLAXOSMITHKLINE-A0886352A

PATIENT
  Age: 84 Year
  Sex: Male

DRUGS (2)
  1. AVANDIA [Suspect]
     Indication: DIABETES MELLITUS
     Dosage: 8MG Per day
     Route: 048
     Dates: start: 20090319, end: 20100309
  2. ACTOS [Concomitant]
     Dates: start: 201003

REACTIONS (3)
  - Acute myocardial infarction [Recovering/Resolving]
  - Renal failure acute [Unknown]
  - Cardiac failure congestive [Unknown]
